FAERS Safety Report 24768628 (Version 1)
Quarter: 2024Q4

REPORT INFORMATION
  Report Type: Spontaneous
  Country: US (occurrence: US)
  Receive Date: 20241224
  Receipt Date: 20241224
  Transmission Date: 20250114
  Serious: No
  Sender: GLAXOSMITHKLINE
  Company Number: US-GSKCCFUS-Case-02160701_AE-119061

PATIENT
  Age: 64 Year
  Sex: Male

DRUGS (1)
  1. SEREVENT DISKUS [Suspect]
     Active Substance: SALMETEROL XINAFOATE
     Indication: Product used for unknown indication
     Dosage: 1 PUFF(S), QD
     Route: 055
     Dates: start: 20241125

REACTIONS (4)
  - Heart rate increased [Unknown]
  - Extra dose administered [Unknown]
  - Device use error [Unknown]
  - Product label confusion [Unknown]

NARRATIVE: CASE EVENT DATE: 20241125
